FAERS Safety Report 9927867 (Version 1)
Quarter: 2014Q1

REPORT INFORMATION
  Report Type: Spontaneous
  Country: None (occurrence: None)
  Receive Date: 20140221
  Receipt Date: 20140221
  Transmission Date: 20141002
  Serious: Yes (Hospitalization)
  Sender: FDA-Public Use
  Company Number: DK-SEPTODONT-201401727

PATIENT
  Age: 39 Year
  Sex: Female

DRUGS (1)
  1. SCANDONEST L [Suspect]
     Indication: LOCAL ANAESTHESIA
     Route: 004
     Dates: start: 20110524

REACTIONS (26)
  - Drug effect increased [None]
  - Headache [None]
  - Anaesthetic complication [None]
  - Hypoaesthesia oral [None]
  - Pain in jaw [None]
  - Eye pruritus [None]
  - Discomfort [None]
  - Ear pain [None]
  - Toothache [None]
  - Glossodynia [None]
  - Paraesthesia oral [None]
  - Swelling [None]
  - Oral pruritus [None]
  - Hypersensitivity [None]
  - Tension headache [None]
  - Hypoaesthesia [None]
  - VIIth nerve paralysis [None]
  - Ulcer [None]
  - Herpes virus infection [None]
  - Burning sensation [None]
  - Dry mouth [None]
  - Candida infection [None]
  - Fatigue [None]
  - Rash [None]
  - Eyelid function disorder [None]
  - Facial asymmetry [None]
